FAERS Safety Report 9656304 (Version 1)
Quarter: 2013Q4

REPORT INFORMATION
  Report Type: Spontaneous
  Country: US (occurrence: US)
  Receive Date: 20131030
  Receipt Date: 20131030
  Transmission Date: 20140711
  Serious: No
  Sender: FDA-Public Use
  Company Number: US-PFIZER INC-2013309045

PATIENT
  Age: 69 Year
  Sex: Female
  Weight: 74.38 kg

DRUGS (6)
  1. CHANTIX [Suspect]
     Indication: SMOKING CESSATION THERAPY
     Dosage: 0.5 MG, 1X/DAY
     Route: 048
     Dates: start: 201310
  2. SYNTHROID [Concomitant]
     Indication: THYROID DISORDER
     Dosage: UNK
  3. CRESTOR [Concomitant]
     Dosage: UNK
  4. SAFFRON [Concomitant]
     Indication: INCREASED APPETITE
     Dosage: UNK
  5. CALCIUM [Concomitant]
     Indication: PARATHYROIDECTOMY
     Dosage: UNK
  6. POTASSIUM [Concomitant]
     Indication: PARATHYROIDECTOMY
     Dosage: UNK

REACTIONS (1)
  - Muscle spasms [Not Recovered/Not Resolved]
